FAERS Safety Report 11568405 (Version 1)
Quarter: 2015Q3

REPORT INFORMATION
  Report Type: Spontaneous
  Country: US (occurrence: US)
  Receive Date: 20150916
  Receipt Date: 20150916
  Transmission Date: 20151125
  Serious: No
  Sender: FDA-Public Use
  Company Number: US-ELI_LILLY_AND_COMPANY-US200908003524

PATIENT
  Sex: Female

DRUGS (1)
  1. FORTEO [Suspect]
     Active Substance: TERIPARATIDE
     Dosage: UNK, UNKNOWN

REACTIONS (10)
  - Visual impairment [Not Recovered/Not Resolved]
  - Myalgia [Unknown]
  - Asthenia [Unknown]
  - Discomfort [Unknown]
  - Rhinorrhoea [Unknown]
  - Balance disorder [Unknown]
  - Dizziness [Unknown]
  - Gait disturbance [Unknown]
  - Feeling abnormal [Unknown]
  - Sneezing [Unknown]
